FAERS Safety Report 20049037 (Version 1)
Quarter: 2021Q4

REPORT INFORMATION
  Report Type: Report from Study
  Country: CN (occurrence: CN)
  Receive Date: 20211109
  Receipt Date: 20211109
  Transmission Date: 20220303
  Serious: Yes (Death, Other)
  Sender: FDA-Public Use
  Company Number: CN-PFIZER INC-202101513807

PATIENT

DRUGS (2)
  1. PACLITAXEL [Suspect]
     Active Substance: PACLITAXEL
     Indication: Gastric cancer
     Dosage: 80 MG/M2, CYCLIC (ON DAYS 1, 8, AND 15 OF EVERY 28-DAY CYCLE)
     Route: 042
  2. RAMUCIRUMAB [Suspect]
     Active Substance: RAMUCIRUMAB
     Indication: Gastric cancer
     Dosage: 8 MG/KG, CYCLIC (ON DAYS 1 AND 15 OF EVERY 28-DAY CYCLE)
     Route: 042

REACTIONS (1)
  - Respiratory failure [Fatal]
